FAERS Safety Report 8558090-0 (Version None)
Quarter: 2012Q3

REPORT INFORMATION
  Report Type: 
  Country: None (occurrence: None)
  Receive Date: 20120801
  Receipt Date: 20120723
  Transmission Date: 20120928
  Serious: Yes (Congenital Anomaly, Other)
  Sender: FDA-Public Use
  Company Number: US-B.I. PHARMACEUTICALS,INC./RIDGEFIELD-2012-BP-07112BP

PATIENT
  Sex: Male
  Weight: 2.02 kg

DRUGS (6)
  1. RETROVIR [Concomitant]
     Indication: MATERNAL EXPOSURE DURING PREGNANCY
     Route: 064
     Dates: start: 20111007, end: 20111007
  2. COMBIVIR [Concomitant]
     Indication: MATERNAL EXPOSURE DURING PREGNANCY
     Route: 064
     Dates: start: 20110715
  3. VIRAMUNE [Suspect]
     Indication: MATERNAL EXPOSURE DURING PREGNANCY
     Route: 064
  4. ZERIT [Concomitant]
     Indication: MATERNAL EXPOSURE DURING PREGNANCY
     Dosage: 40 MG
     Route: 064
     Dates: end: 20110715
  5. RETROVIR [Concomitant]
     Route: 064
     Dates: start: 20111007, end: 20111007
  6. EPIVIR [Concomitant]
     Indication: MATERNAL EXPOSURE DURING PREGNANCY
     Dosage: 300 MG
     Route: 064
     Dates: end: 20110715

REACTIONS (7)
  - CONGENITAL BOWING OF LONG BONES [None]
  - MATERNAL DRUGS AFFECTING FOETUS [None]
  - VENTRICULAR SEPTAL DEFECT [None]
  - ULTRASOUND ANTENATAL SCREEN [None]
  - PREMATURE BABY [None]
  - LOW BIRTH WEIGHT BABY [None]
  - TRISOMY 21 [None]
